FAERS Safety Report 25417019 (Version 1)
Quarter: 2025Q2

REPORT INFORMATION
  Report Type: Spontaneous
  Country: SE (occurrence: SE)
  Receive Date: 20250610
  Receipt Date: 20250610
  Transmission Date: 20250716
  Serious: Yes (Other)
  Sender: BAYER HEALTHCARE PHARMACEUTICALS INC.
  Company Number: None

PATIENT
  Age: 32 Year
  Sex: Female
  Weight: 55 kg

DRUGS (2)
  1. MIRENA [Suspect]
     Active Substance: LEVONORGESTREL
     Indication: Premenstrual syndrome
     Dosage: 20?G/DAY
     Route: 015
     Dates: start: 20240418, end: 20240714
  2. MIRENA [Suspect]
     Active Substance: LEVONORGESTREL
     Indication: Premenstrual dysphoric disorder

REACTIONS (7)
  - Suicidal ideation [Unknown]
  - Muscle spasms [Unknown]
  - Weight decreased [Unknown]
  - Chest discomfort [Recovered/Resolved]
  - Genital haemorrhage [Recovered/Resolved]
  - Abdominal pain [Unknown]
  - Anxiety [Recovered/Resolved]

NARRATIVE: CASE EVENT DATE: 20240418
